FAERS Safety Report 21296053 (Version 2)
Quarter: 2023Q1

REPORT INFORMATION
  Report Type: Spontaneous
  Country: US (occurrence: None)
  Receive Date: 20220906
  Receipt Date: 20230308
  Transmission Date: 20230418
  Serious: Yes (Other)
  Sender: FDA-Public Use
  Company Number: US-ROCHE-3170198

PATIENT
  Age: 36 Year
  Sex: Male

DRUGS (2)
  1. HEMLIBRA [Suspect]
     Active Substance: EMICIZUMAB-KXWH
     Indication: Factor VIII deficiency
     Dosage: STRENGTH: 105MG/0.7ML
     Route: 058
     Dates: start: 20220629
  2. HEMLIBRA [Suspect]
     Active Substance: EMICIZUMAB-KXWH
     Dosage: STRENGTH 105 MG/0.7ML THE OUTCOME OF THE RIGHT ELBOW BLEED WAS REPORTED AS UNKNOWN.
     Route: 058
     Dates: start: 201810

REACTIONS (2)
  - Post procedural haemorrhage [Recovered/Resolved]
  - Haemorrhage [Unknown]
